FAERS Safety Report 9155066 (Version 6)
Quarter: 2014Q3

REPORT INFORMATION
  Report Type: Spontaneous
  Country: US (occurrence: US)
  Receive Date: 20130311
  Receipt Date: 20140717
  Transmission Date: 20150326
  Serious: Yes (Hospitalization, Other)
  Sender: FDA-Public Use
  Company Number: US-009507513-1303USA004173

PATIENT
  Sex: Female
  Weight: 74.83 kg

DRUGS (1)
  1. NUVARING [Suspect]
     Active Substance: ETHINYL ESTRADIOL\ETONOGESTREL
     Indication: CONTRACEPTION
     Dosage: UNK
     Route: 067
     Dates: start: 200605, end: 201103

REACTIONS (9)
  - Upper respiratory tract infection [Unknown]
  - Pulmonary embolism [Unknown]
  - Back pain [Unknown]
  - Back pain [Unknown]
  - Anxiety disorder [Not Recovered/Not Resolved]
  - Drug hypersensitivity [Unknown]
  - Prothrombin level decreased [Unknown]
  - Papilloma viral infection [Unknown]
  - Deep vein thrombosis [Unknown]

NARRATIVE: CASE EVENT DATE: 2008
